FAERS Safety Report 8606730-X (Version None)
Quarter: 2012Q3

REPORT INFORMATION
  Report Type: 
  Country: None (occurrence: None)
  Receive Date: 20120809
  Receipt Date: 20120809
  Transmission Date: 20120928
  Serious: Yes (Hospitalization)
  Sender: FDA-Public Use
  Company Number: None

PATIENT
  Age: 62 Year
  Sex: Male
  Weight: 167.4 kg

DRUGS (1)
  1. LISINOPRIL [Suspect]
     Dosage: 20 MG EVERY DAY PO
     Route: 048
     Dates: start: 19990428, end: 20120221

REACTIONS (2)
  - PANCREATITIS ACUTE [None]
  - SMALL BOWEL ANGIOEDEMA [None]
